FAERS Safety Report 9822067 (Version 1)
Quarter: 2014Q1

REPORT INFORMATION
  Report Type: Report from Study
  Country: AR (occurrence: AR)
  Receive Date: 20140116
  Receipt Date: 20140116
  Transmission Date: 20141002
  Serious: Yes (Hospitalization)
  Sender: FDA-Public Use
  Company Number: PHHY2014AR004218

PATIENT
  Sex: Female

DRUGS (2)
  1. DIOVAN [Suspect]
     Indication: GLAUCOMA
     Dosage: 2 TABLETS (160/25 MG, AS REPORTED) DAILY
     Route: 048
     Dates: start: 2010, end: 2013
  2. DIOVAN [Suspect]
     Indication: OFF LABEL USE
     Dosage: UNK UKN, UNK
     Dates: start: 201311

REACTIONS (1)
  - General physical health deterioration [Recovered/Resolved]
